FAERS Safety Report 6928779-5 (Version None)
Quarter: 2010Q3

REPORT INFORMATION
  Report Type: 
  Country: None (occurrence: None)
  Receive Date: 20100809
  Receipt Date: 20100120
  Transmission Date: 20110219
  Serious: No
  Sender: FDA-Public Use
  Company Number: US-001091

PATIENT
  Sex: Male
  Weight: 95.2554 kg

DRUGS (1)
  1. DEGARELIX (240 MG, 80 MG) [Suspect]
     Dosage: SUBCUTANEOUS
     Route: 058
     Dates: start: 20091028

REACTIONS (2)
  - INJECTION SITE ERYTHEMA [None]
  - INJECTION SITE PAIN [None]
